FAERS Safety Report 6423855-8 (Version None)
Quarter: 2009Q4

REPORT INFORMATION
  Report Type: 
  Country: None (occurrence: None)
  Receive Date: 20091029
  Receipt Date: 20091020
  Transmission Date: 20100525
  Serious: Yes (Other)
  Sender: FDA-Public Use
  Company Number: 2009SP031488

PATIENT
  Age: 61 Year
  Sex: Male

DRUGS (2)
  1. RIBAVIRIN [Suspect]
     Indication: HEPATITIS C
  2. INTERFERON ALFA [Suspect]
     Indication: HEPATITIS C

REACTIONS (4)
  - MASS [None]
  - PANNICULITIS [None]
  - SARCOIDOSIS [None]
  - SCAR [None]
